FAERS Safety Report 7167624-2 (Version None)
Quarter: 2010Q4

REPORT INFORMATION
  Report Type: 
  Country: None (occurrence: None)
  Receive Date: 20101216
  Receipt Date: 20100602
  Transmission Date: 20110411
  Serious: No
  Sender: FDA-Public Use
  Company Number: A0862506A

PATIENT
  Age: 70 Year
  Sex: Female

DRUGS (1)
  1. NICOTINE POLACRILEX [Suspect]
     Dates: start: 20100530, end: 20100530

REACTIONS (2)
  - ABDOMINAL DISCOMFORT [None]
  - MALAISE [None]
